FAERS Safety Report 18539927 (Version 1)
Quarter: 2020Q4

REPORT INFORMATION
  Report Type: Spontaneous
  Country: CN (occurrence: CN)
  Receive Date: 20201124
  Receipt Date: 20201124
  Transmission Date: 20210114
  Serious: Yes (Hospitalization, Other)
  Sender: FDA-Public Use
  Company Number: CN-PFIZER INC-2020461968

PATIENT
  Age: 71 Year
  Sex: Female
  Weight: 65 kg

DRUGS (3)
  1. COMPOUND ALPHA-KETOACID [Concomitant]
     Indication: PROPHYLAXIS
     Dosage: 4 DF, 3X/DAY
     Route: 048
     Dates: start: 20200520, end: 20200603
  2. SODIUM CHLORIDE 0.9% [Concomitant]
     Active Substance: SODIUM CHLORIDE
     Indication: INFECTION
     Dosage: 50 ML, 3X/DAY
     Route: 041
     Dates: start: 20200520, end: 20200526
  3. MEPEM [Suspect]
     Active Substance: MEROPENEM
     Indication: INFECTION
     Dosage: 1 G, 3X/DAY
     Route: 041
     Dates: start: 20200520, end: 20200526

REACTIONS (2)
  - Hallucination [Unknown]
  - Mental disorder [Unknown]

NARRATIVE: CASE EVENT DATE: 20200527
